FAERS Safety Report 6896780-6 (Version None)
Quarter: 2010Q3

REPORT INFORMATION
  Report Type: 
  Country: None (occurrence: None)
  Receive Date: 20100802
  Receipt Date: 20070228
  Transmission Date: 20110219
  Serious: Yes (Other)
  Sender: FDA-Public Use
  Company Number: US-PFIZER INC-2006119412

PATIENT
  Sex: Female
  Weight: 67.6 kg

DRUGS (6)
  1. LYRICA [Suspect]
     Indication: NEURALGIA
     Route: 048
     Dates: start: 20060705, end: 20060721
  2. PROMETHAZINE [Concomitant]
  3. OXYCODONE AND ACETAMINOPHEN [Concomitant]
  4. BUTALBITAL [Concomitant]
  5. XANAX [Concomitant]
  6. FLEXERIL [Concomitant]

REACTIONS (1)
  - GENERALISED OEDEMA [None]
